FAERS Safety Report 4301364-X (Version None)
Quarter: 2004Q1

REPORT INFORMATION
  Report Type: 
  Country: None (occurrence: None)
  Receive Date: 20040223
  Receipt Date: 20030625
  Transmission Date: 20041129
  Serious: No
  Sender: FDA-Public Use
  Company Number: US-GLAXOSMITHKLINE-A0413993A

PATIENT
  Sex: Female

DRUGS (3)
  1. NAVELBINE [Suspect]
     Indication: BREAST CANCER
     Dosage: 25MG EVERY TWO WEEKS
     Route: 042
     Dates: start: 20030609, end: 20030623
  2. TAXOL [Concomitant]
     Route: 042
  3. XELODA [Concomitant]
     Route: 048

REACTIONS (3)
  - NEUROPATHY PERIPHERAL [None]
  - OEDEMA [None]
  - OEDEMA PERIPHERAL [None]
